FAERS Safety Report 7988902-0 (Version None)
Quarter: 2011Q4

REPORT INFORMATION
  Report Type: 
  Country: None (occurrence: None)
  Receive Date: 20111219
  Receipt Date: 20111206
  Transmission Date: 20120403
  Serious: Yes (Hospitalization)
  Sender: FDA-Public Use
  Company Number: CA-ELI_LILLY_AND_COMPANY-CA201112002136

PATIENT
  Age: 57 Year
  Sex: Female

DRUGS (6)
  1. FORTEO [Suspect]
     Indication: OSTEOPOROSIS
     Dosage: 20 UG, QD
     Route: 058
     Dates: start: 20110214
  2. CALCIUM [Concomitant]
  3. LIPITOR [Concomitant]
  4. METHOTREXATE [Concomitant]
  5. FOLIC ACID [Concomitant]
  6. VITAMIN D [Concomitant]

REACTIONS (5)
  - LIGAMENT SPRAIN [None]
  - MALAISE [None]
  - ANKLE FRACTURE [None]
  - EPIGLOTTITIS [None]
  - OROPHARYNGEAL PAIN [None]
